FAERS Safety Report 7953780-2 (Version None)
Quarter: 2011Q4

REPORT INFORMATION
  Report Type: 
  Country: None (occurrence: None)
  Receive Date: 20111202
  Receipt Date: 20111130
  Transmission Date: 20120403
  Serious: Yes (Hospitalization)
  Sender: FDA-Public Use
  Company Number: US-PFIZER INC-2011292668

PATIENT
  Sex: Female
  Weight: 96.1 kg

DRUGS (7)
  1. BUMETANIDE [Concomitant]
     Dosage: 1 MG, UNK
  2. ACETAMINOPHEN [Concomitant]
     Dosage: UNK
  3. ALBUTEROL [Concomitant]
     Indication: DYSPNOEA
     Dosage: UNK
  4. ACETYLSALICYLIC ACID [Concomitant]
     Dosage: UNK
  5. ARTHROTEC [Suspect]
     Indication: ARTHRALGIA
     Dosage: 1 DF, 1X/DAY
     Route: 048
     Dates: start: 20040101
  6. LOTREL [Concomitant]
     Indication: HYPERTENSION
     Dosage: 2/20 MG, UNK
     Route: 048
  7. CLONIDINE [Concomitant]
     Dosage: 0.3 MG, UNK

REACTIONS (2)
  - AORTIC ANEURYSM [None]
  - HAEMOGLOBIN DECREASED [None]
